FAERS Safety Report 18013584 (Version 1)
Quarter: 2020Q3

REPORT INFORMATION
  Report Type: Spontaneous
  Country: US (occurrence: US)
  Receive Date: 20200711
  Receipt Date: 20200711
  Transmission Date: 20201103
  Serious: Yes (Other)
  Sender: FDA-Public Use
  Company Number: None

PATIENT
  Age: 43 Year
  Sex: Female
  Weight: 67.5 kg

DRUGS (13)
  1. DULOXETINE. [Suspect]
     Active Substance: DULOXETINE
     Indication: DEPRESSION
     Dosage: ?          QUANTITY:1 CAPSULE(S);?
     Route: 048
     Dates: start: 20200301, end: 20200709
  2. DULOXETINE. [Suspect]
     Active Substance: DULOXETINE
     Indication: NEUROPATHY PERIPHERAL
     Dosage: ?          QUANTITY:1 CAPSULE(S);?
     Route: 048
     Dates: start: 20200301, end: 20200709
  3. PROPRANOLOL [Concomitant]
     Active Substance: PROPRANOLOL HYDROCHLORIDE
  4. DULOXETINE. [Suspect]
     Active Substance: DULOXETINE
     Indication: MUSCULOSKELETAL PAIN
     Dosage: ?          QUANTITY:1 CAPSULE(S);?
     Route: 048
     Dates: start: 20200301, end: 20200709
  5. DESOXIMETASONE. [Concomitant]
     Active Substance: DESOXIMETASONE
  6. NALTREXONE [Concomitant]
     Active Substance: NALTREXONE
  7. TOPICAL LIDOCAINE [Concomitant]
     Active Substance: LIDOCAINE
  8. VITAMIN D2 [Concomitant]
     Active Substance: ERGOCALCIFEROL
  9. FAMOTIDINE. [Concomitant]
     Active Substance: FAMOTIDINE
  10. ACETAMINOPHEN. [Concomitant]
     Active Substance: ACETAMINOPHEN
  11. CETIRIZINE [Concomitant]
     Active Substance: CETIRIZINE HYDROCHLORIDE
  12. SYNTHROID [Concomitant]
     Active Substance: LEVOTHYROXINE SODIUM
  13. ACETAZOLAMIDE. [Concomitant]
     Active Substance: ACETAZOLAMIDE

REACTIONS (39)
  - Suicidal ideation [None]
  - Diarrhoea [None]
  - Disorientation [None]
  - Confusional state [None]
  - Pain [None]
  - Crying [None]
  - Thinking abnormal [None]
  - Abdominal pain [None]
  - Withdrawal syndrome [None]
  - Fatigue [None]
  - Disturbance in attention [None]
  - Feeling abnormal [None]
  - Abnormal dreams [None]
  - Memory impairment [None]
  - Vertigo [None]
  - Tinnitus [None]
  - Gastrointestinal disorder [None]
  - Decreased appetite [None]
  - Hyperhidrosis [None]
  - Screaming [None]
  - Middle insomnia [None]
  - Somnolence [None]
  - Headache [None]
  - Condition aggravated [None]
  - Heart rate increased [None]
  - Blood pressure systolic increased [None]
  - Pulse abnormal [None]
  - Parosmia [None]
  - Palpitations [None]
  - Hypersomnia [None]
  - Therapy non-responder [None]
  - Product label issue [None]
  - Nightmare [None]
  - Dizziness [None]
  - Nausea [None]
  - Visual impairment [None]
  - Weight decreased [None]
  - Lacrimation increased [None]
  - Blepharospasm [None]

NARRATIVE: CASE EVENT DATE: 20200301
